FAERS Safety Report 17629286 (Version 1)
Quarter: 2020Q2

REPORT INFORMATION
  Report Type: Report from Study
  Country: US (occurrence: US)
  Receive Date: 20200406
  Receipt Date: 20200406
  Transmission Date: 20200713
  Serious: Yes (Other)
  Sender: FDA-Public Use
  Company Number: US-ROCHE-2573437

PATIENT
  Sex: Male

DRUGS (4)
  1. ERIVEDGE [Suspect]
     Active Substance: VISMODEGIB
     Indication: SKIN CANCER
  2. ERIVEDGE [Suspect]
     Active Substance: VISMODEGIB
     Indication: HYPERKALAEMIA
  3. ERIVEDGE [Suspect]
     Active Substance: VISMODEGIB
     Indication: CHRONIC OBSTRUCTIVE PULMONARY DISEASE
  4. ERIVEDGE [Suspect]
     Active Substance: VISMODEGIB
     Indication: BASAL CELL CARCINOMA
     Dosage: TAKE 1 CAPSULE BY MOUTH EVERY DAY FOR 7 DAYS, THEN 3 WEEKS OFF EVERY MONTH
     Route: 048

REACTIONS (1)
  - Cardiac failure [Unknown]
